FAERS Safety Report 24256648 (Version 2)
Quarter: 2024Q3

REPORT INFORMATION
  Report Type: Spontaneous
  Country: US (occurrence: US)
  Receive Date: 20240828
  Receipt Date: 20240926
  Transmission Date: 20241017
  Serious: Yes (Other)
  Sender: BRISTOL MYERS SQUIBB
  Company Number: US-BRISTOL-MYERS SQUIBB COMPANY-2024-132041

PATIENT
  Age: 73 Year
  Sex: Female

DRUGS (2)
  1. LENALIDOMIDE [Suspect]
     Active Substance: LENALIDOMIDE
     Indication: Anaemia
     Dosage: TAKE 1 CAPSULE BY MOUTH EVERY DAY ON DAYS 1-21 THEN 7 ?DAYS OFF. DO NOTBREAK, CHEW, OR OPEN CAPSULES
     Route: 048
  2. LANTUS [Concomitant]
     Active Substance: INSULIN GLARGINE
     Indication: Product used for unknown indication
     Dosage: 30 UNITS

REACTIONS (8)
  - Diarrhoea [Recovering/Resolving]
  - Cardiac disorder [Recovering/Resolving]
  - Atrial fibrillation [Recovering/Resolving]
  - Fatigue [Recovering/Resolving]
  - Glycosylated haemoglobin decreased [Recovering/Resolving]
  - Arthralgia [Recovering/Resolving]
  - Therapy interrupted [Unknown]
  - Product supply issue [Unknown]
